FAERS Safety Report 5580102-7 (Version None)
Quarter: 2008Q1

REPORT INFORMATION
  Report Type: 
  Country: None (occurrence: None)
  Receive Date: 20080103
  Receipt Date: 20071225
  Transmission Date: 20080703
  Serious: Yes (Life-Threatening, Hospitalization, Other)
  Sender: FDA-Public Use
  Company Number: JP-NOVOPROD-270555

PATIENT
  Age: 72 Year
  Sex: Female

DRUGS (3)
  1. NOVOLIN R [Suspect]
     Indication: DIABETES MELLITUS
     Dosage: 12 + 4
     Route: 058
     Dates: start: 20060901
  2. ETIZOLAM [Suspect]
     Indication: DRUG USE FOR UNKNOWN INDICATION
  3. NITRAZEPAM [Suspect]
     Indication: DRUG USE FOR UNKNOWN INDICATION

REACTIONS (3)
  - COMA [None]
  - INTENTIONAL OVERDOSE [None]
  - SUICIDE ATTEMPT [None]
